FAERS Safety Report 19320922 (Version 1)
Quarter: 2021Q2

REPORT INFORMATION
  Report Type: Spontaneous
  Country: US (occurrence: US)
  Receive Date: 20210528
  Receipt Date: 20210528
  Transmission Date: 20210717
  Serious: No
  Sender: FDA-Public Use
  Company Number: None

PATIENT
  Age: 85 Year
  Sex: Male
  Weight: 69.7 kg

DRUGS (13)
  1. ESCITALOPRAM [Concomitant]
     Active Substance: ESCITALOPRAM OXALATE
     Dates: start: 20210525
  2. HYDRALAZINE INJECTION 10 MG [Concomitant]
     Dates: start: 20210527
  3. MIDODRINE TABLET 5 MG [Concomitant]
     Dates: start: 20210524
  4. HEPARIN SODIUM, PORCINE [Suspect]
     Active Substance: HEPARIN SODIUM
     Indication: DEEP VEIN THROMBOSIS
     Dosage: ?          OTHER FREQUENCY:CONTINOUS;?
     Route: 041
     Dates: start: 20210524, end: 20210527
  5. ALLOPURINOL 100 MG TABLET [Concomitant]
     Active Substance: ALLOPURINOL
     Dates: start: 20210524
  6. PANTOPRAZOLE EC TABLET 40 MG [Concomitant]
     Dates: start: 20210524
  7. POLYETHYLENE GLYCOL (MIRALAX) 17 G [Concomitant]
     Dates: start: 20210525
  8. OXYBUTYNIN CR TABLET 5 MG [Concomitant]
     Dates: start: 20210524
  9. ASPIRIN 81 MG CHEWABLE TABLET [Concomitant]
     Dates: start: 20210524
  10. FLUDOCORTISONE TABLET 0.1 MG [Concomitant]
     Dates: start: 20210524
  11. SIMVASTATIN TABLET 20 MG [Concomitant]
     Dates: start: 20210524
  12. FINASTERIDE 5 MG TABLET [Concomitant]
     Active Substance: FINASTERIDE
     Dates: start: 20210524
  13. INSULIN LISPRO 100 UNIT/ML INJECTION 0?5 UNITS [Concomitant]
     Dates: start: 20210526

REACTIONS (1)
  - Haematuria [None]

NARRATIVE: CASE EVENT DATE: 20210527
